FAERS Safety Report 20299436 (Version 7)
Quarter: 2022Q1

REPORT INFORMATION
  Report Type: Report from Study
  Country: BE (occurrence: BE)
  Receive Date: 20220105
  Receipt Date: 20220218
  Transmission Date: 20220424
  Serious: Yes (Hospitalization, Other)
  Sender: FDA-Public Use
  Company Number: BE-ABBVIE-21K-013-3895220-00

PATIENT
  Sex: Male
  Weight: 56 kg

DRUGS (11)
  1. CARBIDOPA\LEVODOPA [Suspect]
     Active Substance: CARBIDOPA\LEVODOPA
     Indication: Parkinson^s disease
     Dosage: CD 3.2ML/H
     Route: 050
     Dates: start: 20150629, end: 20210503
  2. CARBIDOPA\LEVODOPA [Suspect]
     Active Substance: CARBIDOPA\LEVODOPA
     Dosage: MD 5.2 ML; CD 3.5ML/H; ED 2.0 ML; DURING 16HRS
     Route: 050
     Dates: start: 20210503, end: 20220111
  3. CARBIDOPA\LEVODOPA [Suspect]
     Active Substance: CARBIDOPA\LEVODOPA
     Dosage: MD 6.0 ML; CD 3.8ML/H; ED 2.0 ML; DURING 16HRS
     Route: 050
     Dates: start: 20220111, end: 20220111
  4. CARBIDOPA\LEVODOPA [Suspect]
     Active Substance: CARBIDOPA\LEVODOPA
     Dosage: MD 6.0 ML; CD 3.8ML/H; ED 2.0 ML; DURING 16HRS
     Route: 050
     Dates: start: 20220111
  5. ELDEPRYL [Concomitant]
     Active Substance: SELEGILINE HYDROCHLORIDE
     Indication: Product used for unknown indication
  6. LEVOTHYROXINE [Concomitant]
     Active Substance: LEVOTHYROXINE
     Indication: Product used for unknown indication
     Dosage: FREQUENCY IN THE MORNING
  7. PRAMIPEXOLE [Concomitant]
     Active Substance: PRAMIPEXOLE
     Indication: Product used for unknown indication
  8. PRAMIPEXOLE [Concomitant]
     Active Substance: PRAMIPEXOLE
     Dosage: FREQUNCY IN THE MORNING
  9. BENSERAZIDE\LEVODOPA [Concomitant]
     Active Substance: BENSERAZIDE\LEVODOPA
     Indication: Product used for unknown indication
     Dosage: AT BEDTIME FREQUENCY?PROLOPA 125 HBS
  10. STALEVO [Concomitant]
     Active Substance: CARBIDOPA\ENTACAPONE\LEVODOPA
     Indication: Product used for unknown indication
  11. STALEVO [Concomitant]
     Active Substance: CARBIDOPA\ENTACAPONE\LEVODOPA
     Dosage: FREQUENCY AT RISE

REACTIONS (20)
  - Embedded device [Recovered/Resolved]
  - Anaemia [Unknown]
  - Pneumonia [Unknown]
  - Mobility decreased [Unknown]
  - Hypersomnia [Recovered/Resolved]
  - Hypophagia [Unknown]
  - Device deployment issue [Recovered/Resolved]
  - Embedded device [Recovering/Resolving]
  - Device occlusion [Recovered/Resolved]
  - Stoma site pain [Recovered/Resolved]
  - Stoma site discharge [Unknown]
  - Stoma site odour [Unknown]
  - Stoma site haemorrhage [Unknown]
  - Stoma site erythema [Unknown]
  - Adverse reaction [Unknown]
  - Stoma site pain [Unknown]
  - Muscle rigidity [Unknown]
  - On and off phenomenon [Unknown]
  - Gastric haemorrhage [Unknown]
  - Incorrect route of product administration [Recovering/Resolving]

NARRATIVE: CASE EVENT DATE: 20220111
